FAERS Safety Report 15402495 (Version 1)
Quarter: 2018Q3

REPORT INFORMATION
  Report Type: Spontaneous
  Country: US (occurrence: US)
  Receive Date: 20180916
  Receipt Date: 20180916
  Transmission Date: 20181010
  Serious: Yes (Hospitalization)
  Sender: FDA-Public Use
  Company Number: None

PATIENT
  Age: 58 Year
  Sex: Male
  Weight: 71.5 kg

DRUGS (1)
  1. CEFEPIME IN ISO?OSMOTIC 100ML PREMIX IVPB [Suspect]
     Active Substance: CEFEPIME HYDROCHLORIDE
     Indication: CNS VENTRICULITIS
     Route: 042
     Dates: start: 20180822, end: 20180827

REACTIONS (4)
  - Therapy cessation [None]
  - Hepatitis [None]
  - Aspartate aminotransferase increased [None]
  - Alanine aminotransferase increased [None]

NARRATIVE: CASE EVENT DATE: 20180827
